FAERS Safety Report 5727783-2 (Version None)
Quarter: 2008Q2

REPORT INFORMATION
  Report Type: 
  Country: None (occurrence: None)
  Receive Date: 20080505
  Receipt Date: 20080423
  Transmission Date: 20081010
  Serious: Yes (Life-Threatening, Hospitalization)
  Sender: FDA-Public Use
  Company Number: JP-PFIZER INC-2008022497

PATIENT
  Age: 4 Year
  Sex: Male
  Weight: 20 kg

DRUGS (4)
  1. ZARONTIN SYRUP [Suspect]
     Indication: MYOCLONIC EPILEPSY
     Dosage: DAILY DOSE:200MG
     Route: 048
     Dates: start: 20071214, end: 20071227
  2. ZARONTIN SYRUP [Suspect]
     Dosage: DAILY DOSE:400MG
     Dates: start: 20071228, end: 20080130
  3. ZARONTIN SYRUP [Suspect]
     Dosage: DAILY DOSE:500MG
     Dates: start: 20080131, end: 20080218
  4. RIVOTRIL [Concomitant]
     Route: 048

REACTIONS (3)
  - AGRANULOCYTOSIS [None]
  - HISTIOCYTOSIS HAEMATOPHAGIC [None]
  - SEPSIS [None]
